FAERS Safety Report 26132002 (Version 2)
Quarter: 2025Q4

REPORT INFORMATION
  Report Type: Report from Study
  Country: BR (occurrence: BR)
  Receive Date: 20251208
  Receipt Date: 20251223
  Transmission Date: 20260118
  Serious: Yes (Hospitalization)
  Sender: AMGEN
  Company Number: BR-AMGEN-BRASL2025240751

PATIENT
  Age: 31 Year
  Sex: Male

DRUGS (3)
  1. BLINCYTO [Suspect]
     Active Substance: BLINATUMOMAB
     Indication: Acute lymphocytic leukaemia
     Dosage: UNK, EVERY 28 DAYS INFUSION
     Route: 065
  2. ACYCLOVIR [Concomitant]
     Active Substance: ACYCLOVIR
     Dosage: 400 MILLIGRAM, Q12H
  3. BACTRIM [Concomitant]
     Active Substance: SULFAMETHOXAZOLE\TRIMETHOPRIM
     Dosage: 800 MILLIGRAM, 1 TABLET IN THE MORNING AND 1 TABLET AT NIGHT, 6 DAYS A WEEK.]

REACTIONS (4)
  - Malaise [Recovering/Resolving]
  - Somnolence [Recovered/Resolved]
  - Pyrexia [Recovered/Resolved]
  - Vomiting [Recovering/Resolving]
